FAERS Safety Report 14718243 (Version 7)
Quarter: 2020Q2

REPORT INFORMATION
  Report Type: Spontaneous
  Country: US (occurrence: US)
  Receive Date: 20180404
  Receipt Date: 20200407
  Transmission Date: 20200713
  Serious: Yes (Other)
  Sender: FDA-Public Use
  Company Number: US-SA-2018SA070641

PATIENT
  Age: 17 Year
  Sex: Male

DRUGS (10)
  1. IBUPROFEN. [Concomitant]
     Active Substance: IBUPROFEN
     Dosage: 200 MG,UNK
     Route: 065
     Dates: start: 20170815
  2. DUPIXENT [Suspect]
     Active Substance: DUPILUMAB
     Indication: DERMATITIS ATOPIC
     Dosage: 300 MG, QOW
     Route: 058
     Dates: start: 20170311
  3. DUPIXENT [Suspect]
     Active Substance: DUPILUMAB
     Dosage: UNK UNK,UNK
     Route: 058
     Dates: start: 20171015
  4. CLARITINE [Concomitant]
     Active Substance: LORATADINE
     Dosage: UNK, QD
  5. DIPHENHYDRAMINE HYDROCHLORIDE. [Concomitant]
     Active Substance: DIPHENHYDRAMINE HYDROCHLORIDE
     Dosage: UNK UNK,UNK
     Route: 065
     Dates: start: 20170815, end: 20170920
  6. TRIAMCINOLONE [Concomitant]
     Active Substance: TRIAMCINOLONE
     Dosage: UNK UNK,UNK
     Route: 065
     Dates: start: 20170815, end: 20170920
  7. DUPIXENT [Suspect]
     Active Substance: DUPILUMAB
     Dosage: 300 MG,QOW
     Route: 058
     Dates: start: 20171026
  8. PROTOPIC [Concomitant]
     Active Substance: TACROLIMUS
     Dosage: UNK UNK,UNK
     Route: 065
     Dates: start: 20170815, end: 20170920
  9. VITAMINS NOS [Concomitant]
     Active Substance: VITAMINS
  10. GLICLAZIDE [Concomitant]
     Active Substance: GLICLAZIDE
     Dosage: 10 MG,UNK
     Route: 065
     Dates: start: 20170815

REACTIONS (14)
  - Product dose omission [Unknown]
  - Malaise [Recovered/Resolved]
  - Device difficult to use [Unknown]
  - Product storage error [Unknown]
  - Skin haemorrhage [Unknown]
  - Injury associated with device [Unknown]
  - Therapeutic response decreased [Unknown]
  - Pneumonia [Unknown]
  - Product administered at inappropriate site [Unknown]
  - Drug dose omission by device [Unknown]
  - Nasopharyngitis [Unknown]
  - Dermatitis atopic [Recovered/Resolved]
  - Needle issue [Unknown]
  - Product use issue [Unknown]

NARRATIVE: CASE EVENT DATE: 20180328
